FAERS Safety Report 8217925-1 (Version None)
Quarter: 2012Q1

REPORT INFORMATION
  Report Type: 
  Country: None (occurrence: None)
  Receive Date: 20120315
  Receipt Date: 20120229
  Transmission Date: 20120608
  Serious: Yes (Hospitalization, Other)
  Sender: FDA-Public Use
  Company Number: 2010-3389

PATIENT
  Age: 76 Year
  Sex: Female
  Weight: 85 kg

DRUGS (12)
  1. PROCYTHOL (SELEGILINE) [Concomitant]
  2. CILROTON (DOMPERIDONE) [Concomitant]
  3. STALEVO (STALEVO) [Concomitant]
  4. VASCACE PLUS (DYNORM PLUS) [Concomitant]
  5. SINEMET CR [Concomitant]
  6. APOKYN (APOMORPHINE HYDROCHLORIDE) (APOMORPHINE HYDROCHLORIDE) (SOLUTI [Suspect]
     Indication: PARKINSON'S DISEASE
     Dosage: 4 MG ONE TIME DAILY (PEN), SUBCUTANEOUS
     Route: 058
     Dates: start: 20090206, end: 20110610
  7. REQUIP [Concomitant]
  8. LEVOTHYROXINE SODIUM [Concomitant]
  9. ACTONEL [Concomitant]
  10. SALOSPIR (ACETYLSALICYLIC ACID) [Concomitant]
  11. VENORUTON (OXERUTINUM) [Concomitant]
  12. PRAMIPEXOLE DIHYDROCHLORIDE [Concomitant]

REACTIONS (11)
  - PHOBIA [None]
  - NO THERAPEUTIC RESPONSE [None]
  - PANNICULITIS [None]
  - INJECTION SITE REACTION [None]
  - ORTHOSTATIC HYPOTENSION [None]
  - DEPRESSED MOOD [None]
  - ABNORMAL DREAMS [None]
  - HYPOKALAEMIA [None]
  - GASTROENTERITIS [None]
  - CRYING [None]
  - ECCHYMOSIS [None]
